FAERS Safety Report 7700554-3 (Version None)
Quarter: 2011Q3

REPORT INFORMATION
  Report Type: 
  Country: None (occurrence: None)
  Receive Date: 20110822
  Receipt Date: 20110808
  Transmission Date: 20111222
  Serious: Yes (Life-Threatening, Hospitalization)
  Sender: FDA-Public Use
  Company Number: JP-CTI_01386_2011

PATIENT
  Sex: Female

DRUGS (11)
  1. ZONISAMIDE [Concomitant]
     Indication: EPILEPSY
     Dosage: DF
     Route: 048
     Dates: start: 20060720
  2. MOSAPRIDE CITRATE HYDRATE [Concomitant]
     Indication: GASTROINTESTINAL HYPOMOTILITY
     Dosage: DF
     Route: 048
     Dates: start: 20060630
  3. CEFTAZIDIME SODIUM [Concomitant]
     Dosage: DF
     Dates: start: 20100307
  4. MONTELUKAST SODIUM [Concomitant]
     Indication: HYPERSENSITIVITY
     Dosage: DF
     Route: 048
     Dates: start: 20100105
  5. SOLDEM [Concomitant]
     Dosage: DF
     Route: 041
     Dates: start: 20100307
  6. AMBROXOL HYDROCHLORIDE [Concomitant]
     Indication: PRODUCTIVE COUGH
     Dosage: DF
     Route: 048
     Dates: start: 20100112
  7. DEPAKENE [Suspect]
     Indication: EPILEPSY
     Dosage: DAILY DOSE
     Route: 048
     Dates: start: 20060329, end: 20080308
  8. MEIACT MS FINE GRANULES (CEFDITOREN PIVOXIL) [Suspect]
     Indication: BRONCHITIS
     Dosage: DAILY DOSE
     Route: 048
     Dates: start: 20100302, end: 20100308
  9. DIAZEPAM [Concomitant]
     Indication: MUSCLE TIGHTNESS
     Dosage: DF
     Route: 048
     Dates: start: 20060517
  10. PHENOBARBITAL TAB [Concomitant]
     Indication: EPILEPSY
     Dosage: DF
     Route: 048
     Dates: start: 20051208
  11. FUDOSTEINE [Concomitant]
     Indication: PRODUCTIVE COUGH
     Dosage: DF
     Route: 048
     Dates: start: 20060718

REACTIONS (9)
  - LIVER FUNCTION TEST ABNORMAL [None]
  - DISSEMINATED INTRAVASCULAR COAGULATION [None]
  - TACHYCARDIA [None]
  - CONVULSION [None]
  - PYREXIA [None]
  - MYOGLOBIN URINE PRESENT [None]
  - CARNITINE DECREASED [None]
  - LIPID METABOLISM DISORDER [None]
  - RHABDOMYOLYSIS [None]
